FAERS Safety Report 7770196-2 (Version None)
Quarter: 2011Q3

REPORT INFORMATION
  Report Type: 
  Country: None (occurrence: None)
  Receive Date: 20110922
  Receipt Date: 20110209
  Transmission Date: 20111222
  Serious: Yes (Other)
  Sender: FDA-Public Use
  Company Number: US-ASTRAZENECA-2011SE07560

PATIENT
  Age: 47 Year
  Sex: Female

DRUGS (5)
  1. PRILOSEC CR [Concomitant]
  2. TEGRETOL [Concomitant]
  3. CYMBALTA [Concomitant]
  4. GABAPENTIN [Concomitant]
  5. SEROQUEL [Suspect]
     Indication: SLEEP DISORDER
     Route: 048
     Dates: start: 20030101, end: 20110206

REACTIONS (7)
  - MUSCLE SPASMS [None]
  - BRONCHITIS [None]
  - GRAND MAL CONVULSION [None]
  - PETIT MAL EPILEPSY [None]
  - DRUG DOSE OMISSION [None]
  - PNEUMONIA [None]
  - INSOMNIA [None]
